FAERS Safety Report 19086607 (Version 1)
Quarter: 2021Q2

REPORT INFORMATION
  Report Type: Spontaneous
  Country: FR (occurrence: FR)
  Receive Date: 20210402
  Receipt Date: 20210402
  Transmission Date: 20210717
  Serious: Yes (Other)
  Sender: FDA-Public Use
  Company Number: FR-MYLANLABS-2020M1079775

PATIENT
  Age: 16 Year
  Sex: Female

DRUGS (3)
  1. AZITHROMYCIN ANHYDROUS. [Suspect]
     Active Substance: AZITHROMYCIN ANHYDROUS
     Indication: COVID-19
     Dosage: UNK, ON DAY 3 FROM SYMPTOMS INITIATION
     Route: 065
     Dates: start: 20200328
  2. AMOXICILLIN. [Suspect]
     Active Substance: AMOXICILLIN
     Indication: COVID-19
     Dosage: UNK
     Route: 065
     Dates: start: 20200331
  3. ENOXAPARIN [Suspect]
     Active Substance: ENOXAPARIN
     Indication: THROMBOSIS PROPHYLAXIS
     Dosage: 4000 INTERNATIONAL UNIT, QD, ON DAY 6 FROM SYMPTOMS INITIATION
     Route: 065
     Dates: start: 20200331

REACTIONS (2)
  - Heavy menstrual bleeding [Recovered/Resolved]
  - Off label use [Unknown]

NARRATIVE: CASE EVENT DATE: 2020
